FAERS Safety Report 4777672-5 (Version None)
Quarter: 2005Q3

REPORT INFORMATION
  Report Type: 
  Country: None (occurrence: None)
  Receive Date: 20050923
  Receipt Date: 20050404
  Transmission Date: 20060218
  Serious: Yes (Death, Hospitalization)
  Sender: FDA-Public Use
  Company Number: CH-MERCK-0504CHE00006

PATIENT
  Age: 74 Year
  Sex: Male
  Weight: 86 kg

DRUGS (5)
  1. VIOXX [Suspect]
     Indication: OSTEOARTHRITIS
     Route: 048
     Dates: start: 20000726, end: 20030406
  2. VIOXX [Suspect]
     Route: 048
     Dates: start: 20030412, end: 20040713
  3. TAMSULOSIN HYDROCHLORIDE [Concomitant]
     Indication: BENIGN PROSTATIC HYPERPLASIA
     Route: 048
     Dates: end: 20040713
  4. FLUPENTIXOL HYDROCHLORIDE AND MELITRACEN HYDROCHLORIDE [Concomitant]
     Route: 048
     Dates: end: 20040713
  5. ZOLPIDEM TARTRATE [Concomitant]
     Route: 048
     Dates: end: 20040713

REACTIONS (13)
  - ACUTE MYOCARDIAL INFARCTION [None]
  - ACUTE TONSILLITIS [None]
  - ANEURYSM RUPTURED [None]
  - ATELECTASIS [None]
  - BLOOD PRESSURE INCREASED [None]
  - CARDIAC TAMPONADE [None]
  - CARDIOMEGALY [None]
  - EMPHYSEMA [None]
  - HEPATIC STEATOSIS [None]
  - LIVER DISORDER [None]
  - MYOCARDIAL INFARCTION [None]
  - PULMONARY ARTERIAL PRESSURE INCREASED [None]
  - RENAL TUBULAR DISORDER [None]
